FAERS Safety Report 12925214 (Version 1)
Quarter: 2016Q4

REPORT INFORMATION
  Report Type: Spontaneous
  Country: US (occurrence: US)
  Receive Date: 20161108
  Receipt Date: 20161108
  Transmission Date: 20170207
  Serious: No
  Sender: FDA-Public Use
  Company Number: US-SA-2016SA144112

PATIENT
  Age: 68 Year
  Sex: Female

DRUGS (10)
  1. PRALUENT [Suspect]
     Active Substance: ALIROCUMAB
     Route: 065
     Dates: start: 20160629
  2. COUMADIN [Concomitant]
     Active Substance: WARFARIN SODIUM
     Dosage: 5MG
  3. ALIROCUMAB PREFILLED PEN [Concomitant]
     Active Substance: ALIROCUMAB
     Dates: start: 20160629
  4. NORVASC [Concomitant]
     Active Substance: AMLODIPINE BESYLATE
     Dosage: STRENGTH: 5MG
  5. DOXEPIN [Concomitant]
     Active Substance: DOXEPIN
     Dosage: 40MG (STARTED ^6-8 MONTHS AGO^)
  6. XANAX [Concomitant]
     Active Substance: ALPRAZOLAM
     Dosage: 5MG
  7. PEPCID [Concomitant]
     Active Substance: FAMOTIDINE
     Dosage: 20MG
  8. ALLOPURINOL. [Concomitant]
     Active Substance: ALLOPURINOL
     Dosage: STRENGTH: 100MG
  9. BABY ASPIRIN [Concomitant]
     Active Substance: ASPIRIN
  10. DIOVAN [Concomitant]
     Active Substance: VALSARTAN
     Dosage: 320/12.5MG

REACTIONS (5)
  - Headache [Not Recovered/Not Resolved]
  - Pain [Recovered/Resolved]
  - Diarrhoea [Not Recovered/Not Resolved]
  - Pyrexia [Not Recovered/Not Resolved]
  - Rhinorrhoea [Recovered/Resolved]

NARRATIVE: CASE EVENT DATE: 20160730
